FAERS Safety Report 10238667 (Version 1)
Quarter: 2014Q2

REPORT INFORMATION
  Report Type: Spontaneous
  Country: US (occurrence: US)
  Receive Date: 20140616
  Receipt Date: 20140616
  Transmission Date: 20141212
  Serious: No
  Sender: FDA-Public Use
  Company Number: US-ENDO PHARMACEUTICALS INC.-OPCR20140115

PATIENT
  Sex: Male

DRUGS (2)
  1. OPANA ER 30MG [Suspect]
     Indication: PAIN
     Route: 048
     Dates: start: 2013
  2. OPANA ER [Suspect]
     Indication: PAIN
     Route: 048
     Dates: end: 2013

REACTIONS (1)
  - Drug effect decreased [Not Recovered/Not Resolved]
